FAERS Safety Report 7591544-2 (Version None)
Quarter: 2011Q2

REPORT INFORMATION
  Report Type: 
  Country: None (occurrence: None)
  Receive Date: 20110627
  Receipt Date: 20110614
  Transmission Date: 20111010
  Serious: Yes (Hospitalization, Other)
  Sender: FDA-Public Use
  Company Number: AUR-APL-2011-03192

PATIENT
  Age: 63 Year
  Sex: Male

DRUGS (4)
  1. ACETYLSALICYLIC ACID SRT [Suspect]
     Indication: CARDIAC DISORDER
     Dates: end: 20110301
  2. ALKERAN [Suspect]
     Indication: MULTIPLE MYELOMA
  3. METFORMIN HCL [Suspect]
     Indication: DIABETES MELLITUS
     Dates: end: 20110301
  4. SALURES (BENDROFLUMETHIAZIDE) [Suspect]
     Indication: ESSENTIAL HYPERTENSION
     Dates: end: 20110301

REACTIONS (4)
  - NAUSEA [None]
  - DIARRHOEA [None]
  - GASTROENTERITIS [None]
  - PNEUMONIA [None]
